FAERS Safety Report 8882583 (Version 2)
Quarter: 2012Q4

REPORT INFORMATION
  Report Type: 
  Country: US (occurrence: US)
  Receive Date: 20121105
  Receipt Date: 20121210
  Transmission Date: 20130627
  Serious: Yes (Other)
  Sender: FDA-Public Use
  Company Number: US-BAYER-2012-114300

PATIENT
  Age: 55 Year
  Sex: Female
  Weight: 83.45 kg

DRUGS (3)
  1. BETASERON [Suspect]
     Indication: MS
     Dosage: 0.3 mg, QOD
     Route: 058
     Dates: start: 20080505
  2. LOSARTAN [Concomitant]
     Indication: BLOOD PRESSURE HIGH
     Dosage: 50 mg, QD
     Dates: start: 20120829
  3. MODAFINIL [Concomitant]
     Indication: FATIGUE
     Dosage: 100 mg, PRN
     Dates: start: 20121017

REACTIONS (1)
  - Upper limb fracture [Recovering/Resolving]
